FAERS Safety Report 13125171 (Version 2)
Quarter: 2017Q1

REPORT INFORMATION
  Report Type: Spontaneous
  Country: US (occurrence: US)
  Receive Date: 20170118
  Receipt Date: 20170206
  Transmission Date: 20170428
  Serious: Yes (Other)
  Sender: FDA-Public Use
  Company Number: US-PFIZER INC-2017013623

PATIENT
  Age: 58 Year
  Sex: Male
  Weight: 133.81 kg

DRUGS (9)
  1. LYRICA [Suspect]
     Active Substance: PREGABALIN
     Dosage: 200 MG, DAILY(50MG ONE CAPSULE IN THE MORNING, ONE IN THE AFTERNNON, AND TWO IN THE EVENING)
  2. POTASSIUM CHLORIDE. [Concomitant]
     Active Substance: POTASSIUM CHLORIDE
     Indication: PERIPHERAL SWELLING
     Dosage: 10 MEQ, 2X/DAY
     Route: 048
  3. TYLENOL [Concomitant]
     Active Substance: ACETAMINOPHEN
     Indication: PAIN
     Dosage: 2 DF, 2X/DAY(TWO TABLETS BY MOUTH AT NIGHT AND TWO TABLETS BY MOUTH IN THE MORNING EACH DAY)
     Route: 048
     Dates: start: 2011
  4. LYRICA [Suspect]
     Active Substance: PREGABALIN
     Indication: NEUROPATHY PERIPHERAL
     Dosage: 100 MG, 3X/DAY
     Route: 048
     Dates: start: 20161003
  5. LYRICA [Suspect]
     Active Substance: PREGABALIN
     Dosage: 2 DF, 2X/DAY(TWO IN THE MORNING AND TWO IN THE EVENING, WHICH WAS FOUR CAPSULES A DAY)
  6. LYRICA [Suspect]
     Active Substance: PREGABALIN
     Dosage: 1 DF, 2X/DAY(TAKING ONE CAPSULE IN THE MORNING AND ONE CAPSULE IN THE AFTERNOON)
     Dates: start: 20170102
  7. TIZANIDINE HCL [Concomitant]
     Active Substance: TIZANIDINE HYDROCHLORIDE
     Indication: MUSCLE SPASMS
     Dosage: 4 MG, ONE TABLET ABOUT EVERY TWO HOURS AS NEEDED
     Route: 048
     Dates: start: 201601
  8. FUROSEMIDE. [Concomitant]
     Active Substance: FUROSEMIDE
     Indication: PERIPHERAL SWELLING
     Dosage: 20 MG, 2X/DAY
     Route: 048
  9. TIZANIDINE HCL [Concomitant]
     Active Substance: TIZANIDINE HYDROCHLORIDE
     Dosage: NORMALLY TOOK THIS PRODUCT EVERY FOUR HOURS

REACTIONS (6)
  - Intentional product use issue [Not Recovered/Not Resolved]
  - Haematochezia [Unknown]
  - Withdrawal syndrome [Not Recovered/Not Resolved]
  - Condition aggravated [Not Recovered/Not Resolved]
  - Pain [Not Recovered/Not Resolved]
  - Musculoskeletal disorder [Not Recovered/Not Resolved]

NARRATIVE: CASE EVENT DATE: 201612
